FAERS Safety Report 7562870-8 (Version None)
Quarter: 2011Q2

REPORT INFORMATION
  Report Type: 
  Country: None (occurrence: None)
  Receive Date: 20110622
  Receipt Date: 20110614
  Transmission Date: 20111010
  Serious: Yes (Other)
  Sender: FDA-Public Use
  Company Number: US-ROCHE-777751

PATIENT
  Sex: Female
  Weight: 89.4 kg

DRUGS (4)
  1. ASCORBIC ACID [Concomitant]
  2. BONIVA [Suspect]
     Indication: OSTEOPOROSIS
     Dosage: DOSE : 3 MG/3 ML, FREQUENCY: EVERY THREE MONTHS.
     Route: 042
     Dates: start: 20110503
  3. ASPIRIN [Concomitant]
  4. ZANTAC [Concomitant]

REACTIONS (2)
  - SWELLING [None]
  - INJECTION SITE REACTION [None]
